FAERS Safety Report 4880354-2 (Version None)
Quarter: 2006Q1

REPORT INFORMATION
  Report Type: 
  Country: None (occurrence: None)
  Receive Date: 20060111
  Receipt Date: 20060111
  Transmission Date: 20060701
  Serious: Yes (Hospitalization)
  Sender: FDA-Public Use
  Company Number: None

PATIENT
  Age: 64 Year
  Sex: Male
  Weight: 88.5 kg

DRUGS (2)
  1. GEMZAR [Suspect]
     Indication: PANCREATIC CARCINOMA
     Dosage: 1500 MG IV
     Route: 042
     Dates: start: 20060104, end: 20060104
  2. TAXOTERE [Suspect]
     Indication: PANCREATIC CARCINOMA
     Dosage: 60 MG IV
     Route: 042
     Dates: start: 20060104, end: 20060104

REACTIONS (4)
  - DIARRHOEA [None]
  - DRUG EFFECT DECREASED [None]
  - FREQUENT BOWEL MOVEMENTS [None]
  - PANCYTOPENIA [None]
